FAERS Safety Report 7878786-3 (Version None)
Quarter: 2011Q4

REPORT INFORMATION
  Report Type: 
  Country: None (occurrence: None)
  Receive Date: 20111021
  Receipt Date: 20110822
  Transmission Date: 20120403
  Serious: No
  Sender: FDA-Public Use
  Company Number: US-006132

PATIENT
  Sex: Male
  Weight: 72.5755 kg

DRUGS (6)
  1. BENAZEPRIL HYDROCHLORIDE [Concomitant]
  2. DEGARELIX (240 MG, 240 MG) [Suspect]
     Indication: PROSTATE CANCER
     Dosage: (240 MG 1X SUBCUTANEOUS) ; 480 MG 1X/3 MONTHS SUBCUTANEOUS)
     Route: 058
     Dates: start: 20091020, end: 20091020
  3. DEGARELIX (240 MG, 240 MG) [Suspect]
     Indication: PROSTATE CANCER
     Dosage: (240 MG 1X SUBCUTANEOUS) ; 480 MG 1X/3 MONTHS SUBCUTANEOUS)
     Route: 058
     Dates: start: 20091118, end: 20100510
  4. WARFARIN SODIUM [Concomitant]
  5. FLOMAX [Concomitant]
  6. ASPIRIN [Concomitant]

REACTIONS (4)
  - PAIN [None]
  - INJECTION SITE PAIN [None]
  - NODULE [None]
  - INJECTION SITE MASS [None]
